FAERS Safety Report 4604286-X (Version None)
Quarter: 2005Q2

REPORT INFORMATION
  Report Type: 
  Country: None (occurrence: None)
  Receive Date: 20050215
  Receipt Date: 20040412
  Transmission Date: 20051028
  Serious: Yes (Life-Threatening, Hospitalization)
  Sender: FDA-Public Use
  Company Number: 138649USA

PATIENT
  Age: 51 Year
  Sex: Female

DRUGS (3)
  1. PROPOFOL [Suspect]
     Indication: SEDATION
     Dates: start: 20040409, end: 20040409
  2. KEFZOL [Concomitant]
  3. REGLAN [Concomitant]

REACTIONS (3)
  - BRONCHOSPASM [None]
  - HYPERSENSITIVITY [None]
  - INFLAMMATION [None]
